FAERS Safety Report 18312130 (Version 8)
Quarter: 2023Q1

REPORT INFORMATION
  Report Type: Spontaneous
  Country: IT (occurrence: IT)
  Receive Date: 20200925
  Receipt Date: 20230306
  Transmission Date: 20230417
  Serious: Yes (Life-Threatening, Hospitalization, Other)
  Sender: FDA-Public Use
  Company Number: IT-MLMSERVICE-20200916-2484524-1

PATIENT
  Age: 55 Year
  Sex: Female

DRUGS (16)
  1. ATORVASTATIN CALCIUM [Interacting]
     Active Substance: ATORVASTATIN CALCIUM
     Indication: Blood cholesterol increased
     Dosage: 40 MG, 1X/DAY
     Route: 065
     Dates: start: 2015
  2. AMOXICILLIN\CLAVULANIC ACID [Interacting]
     Active Substance: AMOXICILLIN\CLAVULANIC ACID
     Indication: Tooth infection
     Dosage: 1 G, 2X/DAY
     Route: 048
  3. AMOXICILLIN\CLAVULANIC ACID [Interacting]
     Active Substance: AMOXICILLIN\CLAVULANIC ACID
     Indication: Infection
  4. AMIODARONE [Suspect]
     Active Substance: AMIODARONE
     Indication: Cardioversion
     Dosage: 350 MG, PER 60 MIN
     Route: 042
  5. AMIODARONE [Suspect]
     Active Substance: AMIODARONE
     Dosage: 900 MG, DAILY (PER 24 H)
     Route: 042
  6. FUROSEMIDE [Concomitant]
     Active Substance: FUROSEMIDE
     Indication: Haemodynamic instability
     Dosage: 25 MG, ALTERNATE DAY (EVERY OTHER DAY)
     Route: 065
     Dates: start: 2015
  7. FUROSEMIDE [Concomitant]
     Active Substance: FUROSEMIDE
     Indication: Diuretic therapy
     Dosage: 100 MG
     Route: 065
  8. FUROSEMIDE [Concomitant]
     Active Substance: FUROSEMIDE
     Indication: Acute myocardial infarction
     Dosage: 125 MG, 1X/DAY
     Route: 048
  9. APIXABAN [Concomitant]
     Active Substance: APIXABAN
     Indication: Anticoagulant therapy
     Dosage: 10 MG, 1X/DAY
     Dates: start: 2015
  10. OMEPRAZOLE [Concomitant]
     Active Substance: OMEPRAZOLE
     Dosage: 40 MG, 1X/DAY
     Dates: start: 2015
  11. BISOPROLOL [Concomitant]
     Active Substance: BISOPROLOL
     Indication: Acute myocardial infarction
     Dosage: 10 MG, 1X/DAY
     Route: 065
     Dates: start: 2015
  12. URSODIOL [Concomitant]
     Active Substance: URSODIOL
     Dosage: 450 MG, 1X/DAY
     Route: 065
     Dates: start: 2015
  13. RAMIPRIL [Concomitant]
     Active Substance: RAMIPRIL
     Indication: Acute myocardial infarction
     Dosage: 2.5 MG, 1X/DAY
     Route: 065
     Dates: start: 2015
  14. CANRENONE [Concomitant]
     Active Substance: CANRENONE
     Indication: Diuretic therapy
     Dosage: 200 MG, ALTERNATE DAY (EVERY OTHER DAY)
     Route: 065
  15. METOPROLOL [Concomitant]
     Active Substance: METOPROLOL
     Dosage: 150 MG, 1X/DAY
     Route: 065
  16. LEVOTHYROXINE [Concomitant]
     Active Substance: LEVOTHYROXINE
     Indication: Hypothyroidism
     Dosage: 50 UG, 1X/DAY
     Route: 065
     Dates: start: 2015

REACTIONS (5)
  - Drug interaction [Recovered/Resolved]
  - Drug level increased [Recovered/Resolved]
  - Rhabdomyolysis [Recovered/Resolved]
  - Liver injury [Recovered/Resolved]
  - Drug-induced liver injury [Recovered/Resolved]
